FAERS Safety Report 21750594 (Version 1)
Quarter: 2022Q4

REPORT INFORMATION
  Report Type: Report from Study
  Country: US (occurrence: US)
  Receive Date: 20221219
  Receipt Date: 20221219
  Transmission Date: 20230112
  Serious: Yes (Hospitalization)
  Sender: FDA-Public Use
  Company Number: US-GILEAD-2022-0609411

PATIENT
  Age: 51 Year
  Sex: Female

DRUGS (1)
  1. AZTREONAM LYSINE [Suspect]
     Active Substance: AZTREONAM LYSINE
     Indication: Bronchiolitis
     Dosage: 75 MG INHALED THREE TIMES A DAY
     Route: 055
     Dates: start: 20221020

REACTIONS (1)
  - Infection [Unknown]
